FAERS Safety Report 5851978-0 (Version None)
Quarter: 2008Q3

REPORT INFORMATION
  Report Type: 
  Country: None (occurrence: None)
  Receive Date: 20080820
  Receipt Date: 20080808
  Transmission Date: 20090109
  Serious: Yes (Other)
  Sender: FDA-Public Use
  Company Number: GB-PFIZER INC-2008064518

PATIENT
  Sex: Male

DRUGS (3)
  1. CHANTIX [Suspect]
     Indication: SMOKING CESSATION THERAPY
     Route: 048
  2. BETA BLOCKING AGENTS [Suspect]
     Indication: BLOOD PRESSURE
  3. BETA BLOCKING AGENTS [Suspect]
     Indication: CHEST PAIN

REACTIONS (1)
  - FEELING ABNORMAL [None]
